FAERS Safety Report 4758670-4 (Version None)
Quarter: 2005Q3

REPORT INFORMATION
  Report Type: 
  Country: None (occurrence: None)
  Receive Date: 20050830
  Receipt Date: 20050830
  Transmission Date: 20060218
  Serious: Yes (Hospitalization)
  Sender: FDA-Public Use
  Company Number: None

PATIENT
  Age: 49 Year
  Sex: Female
  Weight: 131.8 kg

DRUGS (3)
  1. PARAPLATIN [Suspect]
     Indication: OVARIAN CANCER
     Dosage: PARAPLATIN 900 MG IV Q 3 WKS
     Route: 042
     Dates: start: 20050829
  2. PARAPLATIN [Suspect]
     Indication: OVARIAN CANCER
     Dosage: PARAPLATIN 900 MG IV Q 3 WKS
     Route: 042
     Dates: start: 20050808
  3. TAXOTERE [Concomitant]

REACTIONS (5)
  - BLOOD PRESSURE DECREASED [None]
  - CHEST PAIN [None]
  - FLUSHING [None]
  - HYPERHIDROSIS [None]
  - NAUSEA [None]
